FAERS Safety Report 8485729-0 (Version None)
Quarter: 2012Q3

REPORT INFORMATION
  Report Type: 
  Country: None (occurrence: None)
  Receive Date: 20120703
  Receipt Date: 20120626
  Transmission Date: 20120928
  Serious: Yes (Other)
  Sender: FDA-Public Use
  Company Number: AU-B.I. PHARMACEUTICALS,INC./RIDGEFIELD-2012-AU-01178AU

PATIENT
  Sex: Male
  Weight: 99 kg

DRUGS (19)
  1. PRAZOSIN [Concomitant]
  2. VYTORIN [Concomitant]
  3. RAMIPRIL [Concomitant]
  4. VASOCARDOL [Concomitant]
  5. RABEPRAZOLE SODIUM [Concomitant]
     Indication: GASTROOESOPHAGEAL REFLUX DISEASE
  6. ACETAMINOPHEN AND CODEINE PHOSPHATE [Concomitant]
  7. DIGOXIN [Concomitant]
  8. LANTUS [Concomitant]
     Indication: DIABETES MELLITUS
  9. ALBUTEROL SULATE [Concomitant]
     Indication: CHRONIC OBSTRUCTIVE PULMONARY DISEASE
  10. FLUTICASONE PROPIONATE/SALMETEROL [Concomitant]
     Indication: CHRONIC OBSTRUCTIVE PULMONARY DISEASE
  11. IRON SUPPLEMENT [Concomitant]
  12. PRADAXA [Suspect]
     Dosage: 300 MG
     Dates: start: 20110725
  13. METFORMIN HCL [Concomitant]
  14. FRUSEMIDE [Concomitant]
  15. SPIRIVA [Concomitant]
     Indication: CHRONIC OBSTRUCTIVE PULMONARY DISEASE
  16. PRAMIPEXOLE DIHYCHLORIDE [Concomitant]
     Indication: RESTLESS LEGS SYNDROME
  17. SUMATRIPTAN SUCCINATE [Concomitant]
     Indication: MIGRAINE
  18. ACTONEL [Concomitant]
     Indication: OSTEOPOROSIS
  19. CYMBALTA [Concomitant]
     Indication: DEPRESSION

REACTIONS (1)
  - MYOCARDIAL INFARCTION [None]
